FAERS Safety Report 5319191-3 (Version None)
Quarter: 2007Q2

REPORT INFORMATION
  Report Type: 
  Country: None (occurrence: None)
  Receive Date: 20070508
  Receipt Date: 20070430
  Transmission Date: 20071010
  Serious: Yes (Other)
  Sender: FDA-Public Use
  Company Number: US-ASTRAZENECA-2007UW09589

PATIENT
  Sex: Male
  Weight: 63.6 kg

DRUGS (2)
  1. SEROQUEL [Suspect]
     Indication: DEPRESSION
  2. OLANZAPINE [Concomitant]

REACTIONS (2)
  - DIABETIC COMA [None]
  - DIABETIC KETOACIDOSIS [None]
